FAERS Safety Report 8470826-6 (Version None)
Quarter: 2012Q2

REPORT INFORMATION
  Report Type: 
  Country: None (occurrence: None)
  Receive Date: 20120627
  Receipt Date: 20120621
  Transmission Date: 20120825
  Serious: Yes (Hospitalization)
  Sender: FDA-Public Use
  Company Number: US-PFIZER INC-2012150136

PATIENT
  Sex: Female
  Weight: 161 kg

DRUGS (17)
  1. LYRICA [Suspect]
     Indication: NEUROPATHY PERIPHERAL
  2. CELEXA [Concomitant]
     Dosage: UNK
  3. ZYRTEC [Concomitant]
     Dosage: UNK
  4. LYRICA [Suspect]
     Indication: FIBROMYALGIA
     Dosage: 75 MG, 2X/DAY
     Route: 048
     Dates: start: 20080101
  5. METFORMIN [Concomitant]
     Dosage: UNK
  6. LISINOPRIL [Concomitant]
     Indication: HYPERTENSION
     Dosage: UNK
  7. SINGULAIR [Concomitant]
     Dosage: UNK
  8. ALBUTEROL [Concomitant]
     Dosage: UNK
  9. BETHANECHOL [Concomitant]
     Dosage: UNK
  10. ACETYLSALICYLIC ACID [Concomitant]
     Dosage: 81 MG, UNK
  11. LANTUS [Concomitant]
     Dosage: 20 MG, 1X/DAY
  12. ATORVASTATIN [Concomitant]
     Indication: BLOOD CHOLESTEROL INCREASED
     Dosage: UNK
  13. VITAMIN D [Concomitant]
     Dosage: UNK
  14. LASIX [Concomitant]
     Dosage: UNK
  15. NORVASC [Concomitant]
     Dosage: UNK
  16. ADVAIR DISKUS 100/50 [Concomitant]
     Dosage: UNK
  17. POTASSIUM [Concomitant]
     Dosage: UNK

REACTIONS (3)
  - PAIN [None]
  - PLANTAR FASCIITIS [None]
  - HAEMOPTYSIS [None]
